FAERS Safety Report 9496347 (Version 1)
Quarter: 2013Q3

REPORT INFORMATION
  Report Type: Spontaneous
  Country: DE (occurrence: None)
  Receive Date: 20130829
  Receipt Date: 20130829
  Transmission Date: 20140515
  Serious: Yes (Other)
  Sender: FDA-Public Use
  Company Number: NSR_01233_2013

PATIENT
  Sex: 0

DRUGS (12)
  1. ALLOPURINOL [Suspect]
     Indication: MATERNAL EXPOSURE DURING PREGNANCY
     Dosage: 100 MG DAILY, TRANSPLACENTAL (28 WK UNTIL NOT CONTINUING)
     Route: 064
  2. ALPHA-METHYLDOPA [Concomitant]
  3. METOPROLOL [Concomitant]
  4. MOXONIDINE [Concomitant]
  5. FUROSEMIDE [Concomitant]
  6. CLONIDINE [Concomitant]
  7. DARBEPOETIN ALFA [Concomitant]
  8. DANAPAROID [Concomitant]
  9. ENOXAPARIN [Concomitant]
  10. CORTICOSTEROIDS [Concomitant]
  11. COLECALCIFEROL [Concomitant]
  12. ALFACALCIDOL [Concomitant]

REACTIONS (4)
  - Patent ductus arteriosus [None]
  - Atrial septal defect [None]
  - Umbilical hernia [None]
  - Maternal drugs affecting foetus [None]
